FAERS Safety Report 18745570 (Version 1)
Quarter: 2021Q1

REPORT INFORMATION
  Report Type: Spontaneous
  Country: US (occurrence: US)
  Receive Date: 20210115
  Receipt Date: 20210115
  Transmission Date: 20210419
  Serious: Yes (Life-Threatening, Hospitalization)
  Sender: FDA-Public Use
  Company Number: US-MYLANLABS-2021M1001495

PATIENT
  Age: 37 Year
  Sex: Male

DRUGS (10)
  1. POTASSIUM CHLORIDE. [Concomitant]
     Active Substance: POTASSIUM CHLORIDE
     Indication: HYPOKALAEMIA
     Dosage: 130 MILLIEQUIVALENT
     Route: 042
  2. SODIUM BICARBONATE. [Concomitant]
     Active Substance: SODIUM BICARBONATE
     Indication: TOXICITY TO VARIOUS AGENTS
     Dosage: 100 MILLIEQUIVALENT
     Route: 042
  3. EPINEPHRINE. [Concomitant]
     Active Substance: EPINEPHRINE
     Indication: BRADYCARDIA
     Dosage: 15 MICROGRAM, QMINUTE
  4. DIAZEPAM. [Suspect]
     Active Substance: DIAZEPAM
     Indication: PRODUCT USED FOR UNKNOWN INDICATION
     Dosage: 50 MILLIGRAM APPROXIMATELY 1MG/KG
  5. HYDROXYCHLOROQUINE [Suspect]
     Active Substance: HYDROXYCHLOROQUINE
     Indication: PRODUCT USED FOR UNKNOWN INDICATION
     Dosage: 80 TABLETS OF 200MG (16G) HYDROXYCHLOROQUINE
     Route: 048
  6. SODIUM CHLORIDE. [Concomitant]
     Active Substance: SODIUM CHLORIDE
     Indication: CARDIOTOXICITY
     Dosage: 100 MILLILITER
     Route: 040
  7. MAGNESIUM SULFATE. [Concomitant]
     Active Substance: MAGNESIUM SULFATE
     Indication: DRUG THERAPY
     Dosage: 4 GRAM
     Route: 042
  8. DIAZEPAM. [Suspect]
     Active Substance: DIAZEPAM
     Indication: SEIZURE PROPHYLAXIS
  9. SODIUM BICARBONATE. [Concomitant]
     Active Substance: SODIUM BICARBONATE
     Dosage: 15 MILLIEQUIVALENT
     Route: 042
  10. EPINEPHRINE. [Concomitant]
     Active Substance: EPINEPHRINE
     Indication: HYPOTENSION
     Dosage: 10 MICROGRAM, QMINUTE

REACTIONS (9)
  - Mental status changes [Recovered/Resolved]
  - Cardiotoxicity [Recovering/Resolving]
  - Toxicity to various agents [Recovered/Resolved]
  - Off label use [Unknown]
  - Hypotension [Recovering/Resolving]
  - Bradycardia [Recovering/Resolving]
  - Hypokalaemia [Recovering/Resolving]
  - Atrioventricular block complete [Recovering/Resolving]
  - Intentional overdose [Recovering/Resolving]
